FAERS Safety Report 25451405 (Version 1)
Quarter: 2025Q2

REPORT INFORMATION
  Report Type: Spontaneous
  Country: US (occurrence: US)
  Receive Date: 20250618
  Receipt Date: 20250618
  Transmission Date: 20250717
  Serious: Yes (Other)
  Sender: PACIRA
  Company Number: US-ORG100016242-2025000231

PATIENT
  Sex: Male

DRUGS (1)
  1. EXPAREL [Suspect]
     Active Substance: BUPIVACAINE
     Indication: Spinal fusion surgery
     Route: 050
     Dates: start: 20250529, end: 20250529

REACTIONS (2)
  - Pneumothorax [Unknown]
  - Haematuria [Recovered/Resolved]

NARRATIVE: CASE EVENT DATE: 20250101
